FAERS Safety Report 9519461 (Version 1)
Quarter: 2013Q1

REPORT INFORMATION
  Report Type: Spontaneous
  Country: US (occurrence: None)
  Receive Date: 20130305
  Receipt Date: 20130305
  Transmission Date: 20140127
  Serious: Yes (Life-Threatening, Disabling)
  Sender: FDA-Public Use
  Company Number: 163-21880-12063066

PATIENT
  Age: 82 Year
  Sex: Female
  Weight: 83.92 kg

DRUGS (11)
  1. REVLIMID (LENALIDOMIDE) (25 MILLIGRAM, CAPSULES) [Suspect]
     Indication: PLASMA CELL MYELOMA
     Dosage: 25 MG, 21 IN 21 D, PO
     Route: 048
     Dates: start: 20120102
  2. ZETIA (EZETIMIBE) (UNKNOWN) [Concomitant]
  3. ARICEPT (DONEPEZIL HYDROCHLORIDE) (UNKNOWN) [Concomitant]
  4. GLIPIZIDE (GLIPIZIDE) (UNKNOWN) [Concomitant]
  5. GABAPENTIN (GABAPENTIN) (UNKNOWN) (GABAPENTIN) [Concomitant]
  6. LOVENOX (HEPARIN-FRACTION, SODIUM SALT) (UNKNOWN) [Concomitant]
  7. COUMADIN (WARFARIN SODIUM) (UNKNOWN) [Concomitant]
  8. NAMENDA (MEMANTINE HYDROCHLORIDE) (UNKNOWN) [Concomitant]
  9. LYRICA (PREGABALIN) (UNKNOWN) [Concomitant]
  10. TRAMADOL HCL (TRAMADOL HYDROCHLORIDE) (UNKNOWN) [Concomitant]
  11. DEXAMETHASONE (DEXAMETHASONE) (UNKNOWN)? [Concomitant]

REACTIONS (7)
  - Venous thrombosis [None]
  - Alopecia [None]
  - Abdominal pain upper [None]
  - Abdominal discomfort [None]
  - Sinusitis [None]
  - Influenza [None]
  - Bronchitis [None]
